FAERS Safety Report 11061480 (Version 1)
Quarter: 2015Q2

REPORT INFORMATION
  Report Type: Spontaneous
  Country: US (occurrence: None)
  Receive Date: 20150423
  Receipt Date: 20150423
  Transmission Date: 20150821
  Serious: Yes (Life-Threatening, Hospitalization, Disabling)
  Sender: FDA-Public Use
  Company Number: None

PATIENT
  Age: 27 Year
  Sex: Male
  Weight: 81.65 kg

DRUGS (2)
  1. ANTI REJECTION MEDICATION [Concomitant]
     Active Substance: UNSPECIFIED INGREDIENT
  2. THEOPHYLLINE [Suspect]
     Active Substance: THEOPHYLLINE ANHYDROUS
     Indication: ASTHMA
     Dosage: 2 PILLS
     Route: 048

REACTIONS (3)
  - Congenital renal disorder [None]
  - Renal transplant [None]
  - Maternal drugs affecting foetus [None]

NARRATIVE: CASE EVENT DATE: 20141204
